FAERS Safety Report 24378979 (Version 1)
Quarter: 2024Q3

REPORT INFORMATION
  Report Type: Spontaneous
  Country: US (occurrence: US)
  Receive Date: 20240930
  Receipt Date: 20240930
  Transmission Date: 20241016
  Serious: Yes (Other)
  Sender: AMGEN
  Company Number: US-AMGEN-USASP2024190486

PATIENT

DRUGS (9)
  1. INFLIXIMAB [Suspect]
     Active Substance: INFLIXIMAB
     Indication: Retinopathy proliferative
     Dosage: 10 MILLIGRAM/KILOGRAM/DOSE, Q4WK
     Route: 042
  2. INFLIXIMAB [Suspect]
     Active Substance: INFLIXIMAB
     Indication: Chorioretinitis
  3. INFLIXIMAB [Suspect]
     Active Substance: INFLIXIMAB
     Indication: Uveitis
  4. METHOTREXATE [Concomitant]
     Active Substance: METHOTREXATE
     Indication: Retinopathy proliferative
     Dosage: 25 MILLIGRAM, QWK
     Route: 058
  5. METHOTREXATE [Concomitant]
     Active Substance: METHOTREXATE
     Indication: Chorioretinitis
     Dosage: UNK
     Route: 031
  6. METHOTREXATE [Concomitant]
     Active Substance: METHOTREXATE
     Indication: Uveitis
  7. CORTICOSTEROID NOS [Concomitant]
     Active Substance: CORTICOSTEROID NOS
     Indication: Retinopathy proliferative
     Dosage: UNK (INTRAVITREAL INJECTION)
  8. CORTICOSTEROID NOS [Concomitant]
     Active Substance: CORTICOSTEROID NOS
     Indication: Uveitis
  9. CORTICOSTEROID NOS [Concomitant]
     Active Substance: CORTICOSTEROID NOS
     Indication: Chorioretinitis

REACTIONS (4)
  - Ocular hypertension [Unknown]
  - Cataract [Unknown]
  - Retinal neovascularisation [Unknown]
  - Off label use [Unknown]
